FAERS Safety Report 5159171-4 (Version None)
Quarter: 2006Q4

REPORT INFORMATION
  Report Type: 
  Country: None (occurrence: None)
  Receive Date: 20061120
  Receipt Date: 20061107
  Transmission Date: 20070319
  Serious: Yes (Other)
  Sender: FDA-Public Use
  Company Number: 232339

PATIENT
  Age: 53 Year
  Sex: Male

DRUGS (7)
  1. RITUXIMAB(RITUXIMAB) CONC FOR SOLUTION FOR INFUSION [Suspect]
     Indication: MANTLE CELL LYMPHOMA
  2. CYCLOPHOSPHAMIDE [Concomitant]
  3. VINCRISTINE [Concomitant]
  4. DOXORUBICIN HCL [Concomitant]
  5. DEXAMETHASONE TAB [Concomitant]
  6. METHOTREXATE [Concomitant]
  7. CYTARABINE [Concomitant]

REACTIONS (2)
  - MYELOID MATURATION ARREST [None]
  - NEUTROPENIA [None]
